FAERS Safety Report 5854239-9 (Version None)
Quarter: 2008Q3

REPORT INFORMATION
  Report Type: 
  Country: None (occurrence: None)
  Receive Date: 20080822
  Receipt Date: 20080820
  Transmission Date: 20090109
  Serious: Yes (Other)
  Sender: FDA-Public Use
  Company Number: PHEH2008US07333

PATIENT

DRUGS (2)
  1. TRILEPTAL [Suspect]
     Dosage: UNK, UNK
  2. TEGRETOL [Suspect]

REACTIONS (4)
  - DRUG ADMINISTRATION ERROR [None]
  - LETHARGY [None]
  - POISONING [None]
  - UNRESPONSIVE TO STIMULI [None]
